FAERS Safety Report 13685636 (Version 2)
Quarter: 2017Q3

REPORT INFORMATION
  Report Type: Spontaneous
  Country: GB (occurrence: GB)
  Receive Date: 20170623
  Receipt Date: 20170713
  Transmission Date: 20171127
  Serious: Yes (Other)
  Sender: FDA-Public Use
  Company Number: GB-BRISTOL-MYERS SQUIBB COMPANY-BMS-2017-055182

PATIENT
  Age: 70 Year
  Sex: Male
  Weight: 110 kg

DRUGS (7)
  1. BISOPROLOL [Concomitant]
     Active Substance: BISOPROLOL
     Indication: ATRIAL FIBRILLATION
     Dosage: 10 MG, QD
     Route: 048
     Dates: start: 201702
  2. LISINOPRIL. [Concomitant]
     Active Substance: LISINOPRIL
     Indication: HYPERTENSION
     Dosage: 10 MG, QD
     Route: 048
     Dates: start: 201612
  3. BENDROFLUMETHIAZIDE [Concomitant]
     Active Substance: BENDROFLUMETHIAZIDE
     Indication: HYPERTENSION
     Dosage: 2.5 MG, QD
     Route: 048
     Dates: start: 201612
  4. VITAMIN B COMPOUND STRONG [Concomitant]
     Indication: BLOOD ALCOHOL INCREASED
     Dosage: 2 TAB, TID
     Route: 048
     Dates: start: 201702
  5. THIAMINE. [Concomitant]
     Active Substance: THIAMINE
     Indication: BLOOD ALCOHOL INCREASED
     Dosage: 100 MG, TID
     Route: 048
     Dates: start: 201702
  6. DIGOXIN. [Concomitant]
     Active Substance: DIGOXIN
     Indication: ATRIAL FIBRILLATION
     Dosage: 125 ?G, QD
     Route: 048
     Dates: start: 201702
  7. APIXABAN [Suspect]
     Active Substance: APIXABAN
     Indication: CEREBROVASCULAR ACCIDENT PROPHYLAXIS
     Dosage: 5 MG, BID
     Route: 048
     Dates: start: 201702, end: 20170328

REACTIONS (1)
  - Atrial thrombosis [Recovered/Resolved]

NARRATIVE: CASE EVENT DATE: 20170328
